FAERS Safety Report 9316441 (Version 2)
Quarter: 2013Q2

REPORT INFORMATION
  Report Type: Spontaneous
  Country: JP (occurrence: JP)
  Receive Date: 20130530
  Receipt Date: 20130610
  Transmission Date: 20140414
  Serious: Yes (Other)
  Sender: FDA-Public Use
  Company Number: JP-JNJFOC-20130515670

PATIENT
  Age: 70 Year
  Sex: Male
  Weight: 68 kg

DRUGS (12)
  1. XARELTO [Suspect]
     Indication: THROMBOSIS PROPHYLAXIS
     Route: 048
     Dates: start: 20130517
  2. XARELTO [Suspect]
     Indication: THROMBOSIS PROPHYLAXIS
     Route: 048
     Dates: start: 20120723, end: 201305
  3. XARELTO [Suspect]
     Indication: ANTICOAGULANT THERAPY
     Route: 048
     Dates: start: 20130517
  4. XARELTO [Suspect]
     Indication: ANTICOAGULANT THERAPY
     Route: 048
     Dates: start: 20120723, end: 201305
  5. XARELTO [Suspect]
     Indication: CEREBROVASCULAR ACCIDENT PROPHYLAXIS
     Route: 048
     Dates: start: 20130517
  6. XARELTO [Suspect]
     Indication: CEREBROVASCULAR ACCIDENT PROPHYLAXIS
     Route: 048
     Dates: start: 20120723, end: 201305
  7. XARELTO [Suspect]
     Indication: ATRIAL FIBRILLATION
     Route: 048
     Dates: start: 20120723, end: 201305
  8. XARELTO [Suspect]
     Indication: ATRIAL FIBRILLATION
     Route: 048
     Dates: start: 20130517
  9. UNISIA [Concomitant]
     Indication: HYPERTENSION
     Route: 048
     Dates: start: 20120301
  10. CRESTOR [Concomitant]
     Indication: HYPERLIPIDAEMIA
     Route: 048
     Dates: start: 20111003
  11. HARNAL [Concomitant]
     Indication: BENIGN PROSTATIC HYPERPLASIA
     Route: 048
     Dates: start: 20111003
  12. ESTAZOLAM [Concomitant]
     Indication: INSOMNIA
     Route: 048
     Dates: start: 20111003

REACTIONS (2)
  - Cerebral infarction [Recovered/Resolved with Sequelae]
  - Drug ineffective [Unknown]
